FAERS Safety Report 24595089 (Version 1)
Quarter: 2024Q4

REPORT INFORMATION
  Report Type: Spontaneous
  Country: US (occurrence: US)
  Receive Date: 20241108
  Receipt Date: 20241108
  Transmission Date: 20250115
  Serious: No
  Sender: INCYTE
  Company Number: US-INCYTE CORPORATION-2024IN011356

PATIENT

DRUGS (1)
  1. OPZELURA [Suspect]
     Active Substance: RUXOLITINIB PHOSPHATE
     Indication: Dermatitis atopic
     Dosage: QD
     Route: 061
     Dates: start: 20240425

REACTIONS (4)
  - Sinus disorder [Unknown]
  - Ageusia [Unknown]
  - Anosmia [Unknown]
  - Bronchitis [Unknown]
